FAERS Safety Report 7618546-1 (Version None)
Quarter: 2011Q3

REPORT INFORMATION
  Report Type: 
  Country: None (occurrence: None)
  Receive Date: 20110718
  Receipt Date: 20110713
  Transmission Date: 20111222
  Serious: No
  Sender: FDA-Public Use
  Company Number: US-B.I. PHARMACEUTICALS,INC./RIDGEFIELD-2011-BP-17655BP

PATIENT
  Sex: Male

DRUGS (3)
  1. M.V.I. [Concomitant]
     Indication: VITAMIN SUPPLEMENTATION
  2. AMIODARONE HCL [Concomitant]
     Indication: ATRIAL FIBRILLATION
     Dates: start: 20050101
  3. PRADAXA [Suspect]
     Indication: ATRIAL FIBRILLATION
     Dosage: 300 MG
     Route: 048
     Dates: start: 20110601

REACTIONS (3)
  - CHEST PAIN [None]
  - CHEST DISCOMFORT [None]
  - JOINT SWELLING [None]
